FAERS Safety Report 4462847-5 (Version None)
Quarter: 2004Q3

REPORT INFORMATION
  Report Type: 
  Country: None (occurrence: None)
  Receive Date: 20040927
  Receipt Date: 20040920
  Transmission Date: 20050211
  Serious: Yes (Life-Threatening, Hospitalization)
  Sender: FDA-Public Use
  Company Number: 2004-09-1163

PATIENT
  Age: 48 Year
  Sex: Female
  Weight: 65 kg

DRUGS (2)
  1. PEG-INTRON [Suspect]
     Indication: HEPATITIS C
     Dosage: QW SUBCUTANEOUS
     Route: 058
     Dates: start: 20040101, end: 20040624
  2. REBETOL [Suspect]
     Indication: HEPATITIS C
     Dosage: 800 MG/DAY ORAL
     Route: 048
     Dates: start: 20040101, end: 20040701

REACTIONS (1)
  - CARDIAC FAILURE [None]
